FAERS Safety Report 6877461-1 (Version None)
Quarter: 2010Q2

REPORT INFORMATION
  Report Type: 
  Country: None (occurrence: None)
  Receive Date: 20100616
  Receipt Date: 20100503
  Transmission Date: 20101027
  Serious: No
  Sender: FDA-Public Use
  Company Number: DSA_43087_2010

PATIENT
  Sex: Male

DRUGS (8)
  1. XENAZINE [Suspect]
     Indication: HUNTINGTON'S CHOREA
     Dosage: 12.5 MG BID ORAL
     Route: 048
     Dates: start: 20091201
  2. DOXAZOSIN [Concomitant]
  3. XANAX [Concomitant]
  4. LOVASTATIN [Concomitant]
  5. LEXAPRO [Concomitant]
  6. AVODART [Concomitant]
  7. MECLIZINE [Concomitant]
  8. IBUPROFEN [Concomitant]

REACTIONS (4)
  - DECREASED APPETITE [None]
  - HEADACHE [None]
  - HYPERSOMNIA [None]
  - MOOD ALTERED [None]
